FAERS Safety Report 17360239 (Version 1)
Quarter: 2020Q1

REPORT INFORMATION
  Report Type: Spontaneous
  Country: US (occurrence: US)
  Receive Date: 20200116
  Receipt Date: 20200116
  Transmission Date: 20200409
  Serious: Yes (Hospitalization)
  Sender: FDA-Public Use
  Company Number: None

PATIENT
  Age: 65 Year
  Sex: Female
  Weight: 68 kg

DRUGS (3)
  1. RIBOCICLIB. [Suspect]
     Active Substance: RIBOCICLIB
     Indication: LUNG DISORDER
     Dosage: ?          OTHER FREQUENCY:D8-D14;?
     Route: 048
     Dates: start: 20190523
  2. GEMCITABINE. [Suspect]
     Active Substance: GEMCITABINE
     Indication: METASTASES TO LUNG
     Dosage: ?          OTHER FREQUENCY:D1, D8;?
     Route: 042
     Dates: start: 20190523
  3. GEMCITABINE. [Suspect]
     Active Substance: GEMCITABINE
     Indication: METASTATIC SQUAMOUS CELL CARCINOMA
     Dosage: ?          OTHER FREQUENCY:D1, D8;?
     Route: 042
     Dates: start: 20190523

REACTIONS (2)
  - Chest pain [None]
  - Hypertension [None]

NARRATIVE: CASE EVENT DATE: 20200115
